FAERS Safety Report 23627749 (Version 1)
Quarter: 2024Q1

REPORT INFORMATION
  Report Type: Spontaneous
  Country: ZA (occurrence: ZA)
  Receive Date: 20240313
  Receipt Date: 20240313
  Transmission Date: 20240410
  Serious: Yes (Other)
  Sender: FDA-Public Use
  Company Number: ZA-LUPIN EUROPE GMBH-2024-02154

PATIENT

DRUGS (2)
  1. DROSPIRENONE\ETHINYL ESTRADIOL [Suspect]
     Active Substance: DROSPIRENONE\ETHINYL ESTRADIOL
     Indication: Menstrual disorder
     Dosage: 1 DOSAGE FORM, QD
     Route: 048
  2. YASMIN [Concomitant]
     Active Substance: DROSPIRENONE\ETHINYL ESTRADIOL
     Indication: Menstrual disorder
     Dosage: 1 DOSAGE FORM, QD
     Route: 048

REACTIONS (3)
  - Near death experience [Unknown]
  - Chest pain [Unknown]
  - Dyspepsia [Unknown]
